FAERS Safety Report 6559056-2 (Version None)
Quarter: 2010Q1

REPORT INFORMATION
  Report Type: 
  Country: None (occurrence: None)
  Receive Date: 20100129
  Receipt Date: 20100118
  Transmission Date: 20100710
  Serious: Yes (Hospitalization, Other)
  Sender: FDA-Public Use
  Company Number: US-ELI_LILLY_AND_COMPANY-US201001003877

PATIENT
  Sex: Female

DRUGS (7)
  1. FORTEO [Suspect]
     Indication: OSTEOPOROSIS
     Dosage: 20 UG, DAILY (1/D)
     Dates: start: 20050701, end: 20070301
  2. FORTEO [Suspect]
     Dosage: 20 UG, DAILY (1/D)
     Dates: start: 20071201
  3. FORTEO [Suspect]
     Dosage: 20 UG, DAILY (1/D)
     Dates: end: 20080301
  4. POTASSIUM [Concomitant]
  5. OXYCODONE [Concomitant]
  6. XANAX [Concomitant]
  7. NEURONTIN [Concomitant]
     Dosage: 1200 MG, 2/D

REACTIONS (13)
  - ARTHRALGIA [None]
  - ASTHENIA [None]
  - BLOOD CALCIUM INCREASED [None]
  - BLOOD GLUCOSE INCREASED [None]
  - BUNION [None]
  - DYSURIA [None]
  - FALL [None]
  - PAIN IN EXTREMITY [None]
  - PROTEIN TOTAL DECREASED [None]
  - RENAL FAILURE [None]
  - SINUS DISORDER [None]
  - SOMNOLENCE [None]
  - TREMOR [None]
